FAERS Safety Report 21370643 (Version 1)
Quarter: 2022Q3

REPORT INFORMATION
  Report Type: Spontaneous
  Country: US (occurrence: None)
  Receive Date: 20220923
  Receipt Date: 20220923
  Transmission Date: 20221027
  Serious: Yes (Other)
  Sender: FDA-Public Use
  Company Number: US-ROCHE-3129454

PATIENT
  Sex: Female

DRUGS (2)
  1. XELODA [Suspect]
     Active Substance: CAPECITABINE
     Indication: Product used for unknown indication
     Route: 065
  2. TUKYSA [Suspect]
     Active Substance: TUCATINIB
     Indication: Product used for unknown indication
     Dosage: DOCTOR HAS CHANGED THE TUCATINIB DOSE ON 03/JUL/2022 TO 2 TABLETS IN THE MORNING AND 1 TABLET IN THE
     Route: 065

REACTIONS (7)
  - Joint stiffness [Unknown]
  - Pain [Unknown]
  - Arthralgia [Unknown]
  - Product physical issue [Unknown]
  - Adverse drug reaction [Unknown]
  - Poisoning [Unknown]
  - Ill-defined disorder [Unknown]
